FAERS Safety Report 6789672-4 (Version None)
Quarter: 2010Q2

REPORT INFORMATION
  Report Type: 
  Country: None (occurrence: None)
  Receive Date: 20100624
  Receipt Date: 20100615
  Transmission Date: 20101027
  Serious: No
  Sender: FDA-Public Use
  Company Number: US-BIOGENIDEC-2010BI020771

PATIENT
  Sex: Female

DRUGS (2)
  1. AVONEX [Suspect]
     Indication: MULTIPLE SCLEROSIS
     Route: 030
     Dates: start: 20001115, end: 20021218
  2. AVONEX [Suspect]
     Route: 030
     Dates: start: 20050506, end: 20090701

REACTIONS (2)
  - ABASIA [None]
  - DYSSTASIA [None]
